FAERS Safety Report 10409811 (Version 1)
Quarter: 2014Q3

REPORT INFORMATION
  Report Type: Spontaneous
  Country: FR (occurrence: None)
  Receive Date: 20140707
  Receipt Date: 20140707
  Transmission Date: 20150326
  Serious: Yes (Hospitalization)
  Sender: FDA-Public Use
  Company Number: AUR-APL-2014-06102

PATIENT
  Age: 48 Year
  Sex: Female
  Weight: 112 kg

DRUGS (10)
  1. ARTOTEC [Suspect]
     Active Substance: DICLOFENAC SODIUM\MISOPROSTOL
     Indication: PRODUCT USED FOR UNKNOWN INDICATION
     Route: 048
  2. TERCIAN (CYAMEMAZINE) [Concomitant]
  3. PAROXETINE (PAROXETINE) [Concomitant]
     Active Substance: PAROXETINE HYDROCHLORIDE
  4. ALPRAZOLAM (ALPRAZOLAM) [Concomitant]
     Active Substance: ALPRAZOLAM
  5. TIAPRIDAL (TRIAPRIDE) [Concomitant]
  6. VICTOZA [Suspect]
     Active Substance: LIRAGLUTIDE
     Indication: TYPE 2 DIABETES MELLITUS
     Route: 048
  7. LEVOTHYROX (LEVOTHYROXINE SODIUM) [Concomitant]
     Active Substance: LEVOTHYROXINE SODIUM
  8. METFORMIN [Suspect]
     Active Substance: METFORMIN HYDROCHLORIDE
     Indication: TYPE 2 DIABETES MELLITUS
     Route: 048
     Dates: start: 1995, end: 20140403
  9. DIAMICRON (GLICLAZIDE) [Concomitant]
  10. ESIDREX (HYDROCHOROTHIAZIDE) [Concomitant]

REACTIONS (3)
  - Renal failure [None]
  - Diarrhoea [None]
  - Lactic acidosis [None]

NARRATIVE: CASE EVENT DATE: 20140403
